FAERS Safety Report 11789305 (Version 1)
Quarter: 2015Q4

REPORT INFORMATION
  Report Type: Spontaneous
  Country: US (occurrence: US)
  Receive Date: 20151201
  Receipt Date: 20151201
  Transmission Date: 20160305
  Serious: Yes (Death)
  Sender: FDA-Public Use
  Company Number: US-FRI-1000054401

PATIENT
  Sex: Male
  Weight: 70 kg

DRUGS (13)
  1. AMLODIPINE [Concomitant]
     Active Substance: AMLODIPINE BESYLATE
     Dates: start: 20101124, end: 20130710
  2. SOLANEZUMAB [Concomitant]
     Active Substance: SOLANEZUMAB
     Indication: DEMENTIA ALZHEIMER^S TYPE
     Dates: start: 20090722, end: 20110107
  3. QUINAPRIL [Concomitant]
     Active Substance: QUINAPRIL\QUINAPRIL HYDROCHLORIDE
     Dates: start: 20101110
  4. DIVALPROEX SODIUM. [Concomitant]
     Active Substance: DIVALPROEX SODIUM
     Dates: start: 20130101
  5. ARICEPT [Concomitant]
     Active Substance: DONEPEZIL HYDROCHLORIDE
     Dates: start: 20060215
  6. ASPIRIN. [Concomitant]
     Active Substance: ASPIRIN
     Dates: start: 20130710
  7. SOLANEZUMAB [Concomitant]
     Active Substance: SOLANEZUMAB
     Dates: start: 20110203, end: 20130626
  8. ASPIRIN. [Concomitant]
     Active Substance: ASPIRIN
     Dates: start: 20080610
  9. ZOLOFT [Concomitant]
     Active Substance: SERTRALINE HYDROCHLORIDE
     Dates: start: 20080317
  10. NAMENDA [Suspect]
     Active Substance: MEMANTINE HYDROCHLORIDE
     Dates: start: 20080428
  11. NAPROXEN. [Concomitant]
     Active Substance: NAPROXEN
     Dates: start: 201106
  12. NAPROXEN. [Concomitant]
     Active Substance: NAPROXEN
     Dates: start: 20110401, end: 20110405
  13. VITAMIN D [Concomitant]
     Active Substance: CHOLECALCIFEROL
     Dates: start: 20110323

REACTIONS (1)
  - Cough [Unknown]

NARRATIVE: CASE EVENT DATE: 20130626
